FAERS Safety Report 21823892 (Version 1)
Quarter: 2023Q1

REPORT INFORMATION
  Report Type: Spontaneous
  Country: US (occurrence: US)
  Receive Date: 20230105
  Receipt Date: 20230105
  Transmission Date: 20230418
  Serious: No
  Sender: FDA-Public Use
  Company Number: US-JNJFOC-20221261162

PATIENT
  Age: 59 Year
  Sex: Male
  Weight: 89.438 kg

DRUGS (1)
  1. TREMFYA [Suspect]
     Active Substance: GUSELKUMAB
     Indication: Psoriasis
     Route: 058
     Dates: start: 20221201

REACTIONS (1)
  - Cough [Unknown]

NARRATIVE: CASE EVENT DATE: 20221201
